FAERS Safety Report 4557294-1 (Version None)
Quarter: 2005Q1

REPORT INFORMATION
  Report Type: 
  Country: None (occurrence: None)
  Receive Date: 20050118
  Receipt Date: 20050104
  Transmission Date: 20050727
  Serious: Yes (Hospitalization)
  Sender: FDA-Public Use
  Company Number: 2005003481

PATIENT
  Age: 26 Year
  Sex: Female

DRUGS (6)
  1. LITHIUM (LITHIUM) [Suspect]
     Indication: BIPOLAR I DISORDER
  2. TOPIRAMATE [Suspect]
     Indication: BIPOLAR I DISORDER
  3. RISPERDAL [Suspect]
     Indication: MANIA
  4. LAMOTRIGINE [Suspect]
     Indication: MANIA
  5. VALPROIC ACID [Concomitant]
  6. CLONAZEPAM [Suspect]

REACTIONS (5)
  - CONDITION AGGRAVATED [None]
  - CONFUSIONAL STATE [None]
  - DISTURBANCE IN ATTENTION [None]
  - LETHARGY [None]
  - MANIA [None]
